FAERS Safety Report 10403858 (Version 2)
Quarter: 2014Q3

REPORT INFORMATION
  Report Type: Spontaneous
  Country: US (occurrence: US)
  Receive Date: 20140822
  Receipt Date: 20140916
  Transmission Date: 20150326
  Serious: Yes (Death, Hospitalization)
  Sender: FDA-Public Use
  Company Number: US-ACTELION-A-US2014-104253

PATIENT
  Age: 59 Year
  Sex: Male

DRUGS (11)
  1. NIACIN. [Concomitant]
     Active Substance: NIACIN
     Dosage: 125 MG, UNK
  2. IRON [Concomitant]
     Active Substance: IRON
     Dosage: 325 MG, UNK
  3. ZOLOFT [Concomitant]
     Active Substance: SERTRALINE HYDROCHLORIDE
     Dosage: 100 MG, UNK
  4. VALCHLOR [Suspect]
     Active Substance: MECHLORETHAMINE
     Indication: T-CELL LYMPHOMA
     Dosage: UNK UNK, QD
     Route: 061
     Dates: start: 20140310, end: 20140725
  5. ACYCLOVIR. [Concomitant]
     Active Substance: ACYCLOVIR
     Dosage: 200 MG, UNK
  6. ASPIRIN. [Concomitant]
     Active Substance: ASPIRIN
     Dosage: 81 MG, UNK
  7. GLUCOSAMINE [Concomitant]
     Active Substance: GLUCOSAMINE
     Dosage: 1000 MG, UNK
  8. PRALATREXATE [Concomitant]
     Active Substance: PRALATREXATE
     Dosage: UNK
  9. REMERON [Concomitant]
     Active Substance: MIRTAZAPINE
     Dosage: 15 MG, UNK
  10. LIPITOR [Concomitant]
     Active Substance: ATORVASTATIN CALCIUM
     Dosage: 20 MG, UNK
  11. SYNTHROID [Concomitant]
     Active Substance: LEVOTHYROXINE SODIUM
     Dosage: 137 UNK, UNK

REACTIONS (1)
  - Disease progression [Fatal]

NARRATIVE: CASE EVENT DATE: 20140815
